FAERS Safety Report 4817269-1 (Version None)
Quarter: 2005Q3

REPORT INFORMATION
  Report Type: 
  Country: None (occurrence: None)
  Receive Date: 20050929
  Receipt Date: 20050603
  Transmission Date: 20060218
  Serious: No
  Sender: FDA-Public Use
  Company Number: 05P-163-0302362-00

PATIENT
  Age: 62 Year
  Sex: Female

DRUGS (5)
  1. HUMIRA [Suspect]
     Indication: RHEUMATOID ARTHRITIS
     Dosage: 40 MG, 1 IN 2 WK, SUBCUTANEOUS
     Route: 058
     Dates: start: 20050501, end: 20050601
  2. PREDNISONE [Concomitant]
  3. ESOMEPRAZOLE [Concomitant]
  4. CALCIUM GLUCONATE [Concomitant]
  5. RISEDRONATE SODIUM [Concomitant]

REACTIONS (4)
  - ANXIETY [None]
  - INJECTION SITE ERYTHEMA [None]
  - NAUSEA [None]
  - URTICARIA [None]
